FAERS Safety Report 21674359 (Version 1)
Quarter: 2022Q4

REPORT INFORMATION
  Report Type: Other
  Country: None (occurrence: RO)
  Receive Date: 20221202
  Receipt Date: 20221202
  Transmission Date: 20230112
  Serious: Yes (Life-Threatening, Hospitalization)
  Sender: FDA-Public Use
  Company Number: RO-B.Braun Medical Inc.-2135475

PATIENT
  Age: 31 Year
  Sex: Female

DRUGS (2)
  1. MEROPENEM\SODIUM CHLORIDE [Suspect]
     Active Substance: MEROPENEM\SODIUM CHLORIDE
  2. METRONIDAZOLE [Suspect]
     Active Substance: METRONIDAZOLE

REACTIONS (1)
  - Drug ineffective [Unknown]
